FAERS Safety Report 15655398 (Version 2)
Quarter: 2019Q2

REPORT INFORMATION
  Report Type: Spontaneous
  Country: IT (occurrence: IT)
  Receive Date: 20181126
  Receipt Date: 20190621
  Transmission Date: 20190711
  Serious: Yes (Hospitalization)
  Sender: FDA-Public Use
  Company Number: IT-SUN PHARMACEUTICAL INDUSTRIES LTD-2018RR-191955

PATIENT
  Age: 40 Year
  Sex: Male

DRUGS (3)
  1. OLANZAPINE. [Suspect]
     Active Substance: OLANZAPINE
     Indication: INTENTIONAL OVERDOSE
     Dosage: 50 MILLIGRAM, IN TOTAL
     Route: 048
     Dates: start: 20181022, end: 20181022
  2. FELISON 30 MG CAPSULE RIGIDE [Suspect]
     Active Substance: FLURAZEPAM MONOHYDROCHLORIDE
     Indication: INTENTIONAL OVERDOSE
     Dosage: 10 DF, IN TOTAL
     Route: 048
     Dates: start: 20181022, end: 20181022
  3. LYRICA [Suspect]
     Active Substance: PREGABALIN
     Indication: INTENTIONAL OVERDOSE
     Dosage: 30 DF, IN TOTAL
     Route: 048
     Dates: start: 20181022, end: 20181022

REACTIONS (2)
  - Sopor [Recovered/Resolved]
  - Confusional state [Recovered/Resolved]

NARRATIVE: CASE EVENT DATE: 20181022
